FAERS Safety Report 17769909 (Version 1)
Quarter: 2020Q2

REPORT INFORMATION
  Report Type: Spontaneous
  Country: US (occurrence: US)
  Receive Date: 20200511
  Receipt Date: 20200511
  Transmission Date: 20200714
  Serious: No
  Sender: FDA-Public Use
  Company Number: None

PATIENT
  Age: 25 Year
  Sex: Male

DRUGS (2)
  1. OMEGA [Concomitant]
  2. HUMIRA [Suspect]
     Active Substance: ADALIMUMAB
     Indication: SPINAL OSTEOARTHRITIS
     Dosage: ?          OTHER FREQUENCY:Q14D ;?
     Route: 058
     Dates: start: 20190711

REACTIONS (2)
  - Substance use [None]
  - Fasting [None]

NARRATIVE: CASE EVENT DATE: 20200508
